FAERS Safety Report 14138882 (Version 2)
Quarter: 2017Q4

REPORT INFORMATION
  Report Type: Spontaneous
  Country: US (occurrence: US)
  Receive Date: 20171027
  Receipt Date: 20171102
  Transmission Date: 20180321
  Serious: No
  Sender: FDA-Public Use
  Company Number: US-009507513-1710USA005759

PATIENT
  Age: 32 Year
  Sex: Female
  Weight: 122.9 kg

DRUGS (1)
  1. NEXPLANON [Suspect]
     Active Substance: ETONOGESTREL
     Indication: CONTRACEPTION
     Dosage: 1 ROD, EVERY THREE YEARS
     Route: 059
     Dates: start: 20151116, end: 20171010

REACTIONS (7)
  - Irritability [Recovered/Resolved]
  - Polymenorrhoea [Recovered/Resolved]
  - Menorrhagia [Recovered/Resolved]
  - Breast tenderness [Recovered/Resolved]
  - Device breakage [Recovered/Resolved]
  - Hypomenorrhoea [Recovered/Resolved]
  - Dysmenorrhoea [Recovered/Resolved]

NARRATIVE: CASE EVENT DATE: 201709
